FAERS Safety Report 9281686 (Version 1)
Quarter: 2013Q2

REPORT INFORMATION
  Report Type: Spontaneous
  Country: US (occurrence: US)
  Receive Date: 20130509
  Receipt Date: 20130509
  Transmission Date: 20140414
  Serious: Yes (Life-Threatening, Other)
  Sender: FDA-Public Use
  Company Number: US-ABBOTT-13P-163-1086022-00

PATIENT
  Sex: Female

DRUGS (2)
  1. SYNTHROID [Suspect]
     Indication: THYROID DISORDER
     Dosage: SEVERAL UNKNOWN DOSES
  2. SYNTHROID [Suspect]
     Indication: HYPOTHYROIDISM

REACTIONS (5)
  - Agitation [Recovered/Resolved]
  - Adverse event [Unknown]
  - Blood test abnormal [Unknown]
  - Insomnia [Recovered/Resolved]
  - Disturbance in attention [Recovered/Resolved]
